FAERS Safety Report 15222724 (Version 1)
Quarter: 2018Q3

REPORT INFORMATION
  Report Type: Spontaneous
  Country: GB (occurrence: GB)
  Receive Date: 20180731
  Receipt Date: 20180731
  Transmission Date: 20181010
  Serious: Yes (Other)
  Sender: FDA-Public Use
  Company Number: PHHY2018GB053700

PATIENT
  Sex: Male

DRUGS (1)
  1. CLOFAZIMINE [Suspect]
     Active Substance: CLOFAZIMINE
     Indication: CROHN^S DISEASE
     Dosage: 100 MG, QD (HIGH DOSE)
     Route: 065

REACTIONS (3)
  - Histiocytosis [Unknown]
  - Gastrointestinal tract mucosal discolouration [Unknown]
  - Product use in unapproved indication [Unknown]
